FAERS Safety Report 8034726 (Version 3)
Quarter: 2013Q1

REPORT INFORMATION
  Report Type: Report from Study
  Country: JP (occurrence: JP)
  Receive Date: 20110714
  Receipt Date: 20130215
  Transmission Date: 20140127
  Serious: Yes (Other)
  Sender: FDA-Public Use
  Company Number: PHHY2009JP31821

PATIENT
  Age: 77 Year
  Sex: Female

DRUGS (13)
  1. AMN107 [Suspect]
     Indication: CHRONIC MYELOID LEUKAEMIA
     Dosage: 200 MG, UNK
     Route: 048
     Dates: start: 20090501, end: 20090608
  2. AMN107 [Suspect]
     Dosage: 400 MG, UNK
     Route: 048
     Dates: start: 20090609, end: 20090706
  3. AMN107 [Suspect]
     Dosage: 200 MG, UNK
     Route: 048
     Dates: start: 20090707, end: 20090713
  4. AMN107 [Suspect]
     Dosage: 200 MG, DAILY
     Route: 048
     Dates: start: 20090908, end: 20091124
  5. AMN107 [Suspect]
     Dosage: 200 MG, DAILY
     Route: 048
     Dates: start: 20091223, end: 20100119
  6. AMN107 [Suspect]
     Dosage: 200 MG, DAILY
     Route: 048
     Dates: start: 20100217, end: 20100316
  7. AMN107 [Suspect]
     Dosage: 200 MG, DAILY
     Route: 048
     Dates: start: 20100331, end: 20100426
  8. AMN107 [Suspect]
     Dosage: 200 MG, DAILY
     Route: 048
     Dates: start: 20100512
  9. LASIX [Concomitant]
     Route: 048
  10. AMLODIN [Concomitant]
  11. MEILAX [Concomitant]
  12. TAKEPRON [Concomitant]
  13. POSTERISAN [Concomitant]

REACTIONS (9)
  - Pancytopenia [Not Recovered/Not Resolved]
  - Platelet count increased [Recovered/Resolved]
  - Platelet count decreased [Recovered/Resolved]
  - White blood cell count increased [Recovered/Resolved]
  - Generalised oedema [Recovered/Resolved]
  - Hypoaesthesia [Unknown]
  - Decreased appetite [Unknown]
  - Malaise [Unknown]
  - Blood potassium increased [Recovering/Resolving]
